FAERS Safety Report 5624225-2 (Version None)
Quarter: 2008Q1

REPORT INFORMATION
  Report Type: 
  Country: None (occurrence: None)
  Receive Date: 20080213
  Receipt Date: 20080208
  Transmission Date: 20080703
  Serious: Yes (Hospitalization)
  Sender: FDA-Public Use
  Company Number: PHHY2008JP01123

PATIENT
  Age: 80 Year
  Sex: Female

DRUGS (6)
  1. LAMISIL [Suspect]
     Indication: ONYCHOMYCOSIS
     Dosage: 125 MG/DAY
     Route: 048
     Dates: start: 20071228, end: 20080104
  2. NORVASC [Concomitant]
     Route: 048
  3. LIVALO [Concomitant]
     Route: 048
  4. ALFAROL [Concomitant]
     Route: 048
  5. ITOROL [Concomitant]
     Route: 048
  6. DILTIAZEM HCL [Concomitant]
     Route: 048

REACTIONS (5)
  - HYPOAESTHESIA [None]
  - IDIOPATHIC THROMBOCYTOPENIC PURPURA [None]
  - OEDEMA PERIPHERAL [None]
  - PETECHIAE [None]
  - PLATELET COUNT DECREASED [None]
